FAERS Safety Report 6380245-4 (Version None)
Quarter: 2009Q3

REPORT INFORMATION
  Report Type: 
  Country: None (occurrence: None)
  Receive Date: 20090929
  Receipt Date: 20090918
  Transmission Date: 20100115
  Serious: Yes (Hospitalization)
  Sender: FDA-Public Use
  Company Number: JP-JNJFOC-20090703114

PATIENT
  Sex: Female
  Weight: 55 kg

DRUGS (18)
  1. REMICADE [Suspect]
     Indication: RHEUMATOID ARTHRITIS
     Dosage: IN 9TH MONTH OF INFLLIXIMAB INFUSION
     Route: 042
     Dates: start: 20070627
  2. PREDNISOLONE [Suspect]
     Route: 048
  3. PREDNISOLONE [Suspect]
     Indication: RHEUMATOID ARTHRITIS
     Route: 048
  4. RHEUMATREX [Suspect]
     Route: 048
  5. RHEUMATREX [Suspect]
     Route: 048
  6. RHEUMATREX [Suspect]
     Indication: RHEUMATOID ARTHRITIS
     Route: 048
  7. SHIOSOL [Concomitant]
     Route: 030
  8. SHIOSOL [Concomitant]
     Indication: RHEUMATOID ARTHRITIS
     Route: 030
  9. LUVOX [Concomitant]
     Indication: DEPRESSION
     Route: 048
  10. SOLANAX [Concomitant]
     Indication: DEPRESSION
     Route: 048
  11. MYSLEE [Concomitant]
     Indication: DEPRESSION
     Route: 048
  12. HALCION [Concomitant]
     Indication: DEPRESSION
     Route: 048
  13. VOLTAREN [Concomitant]
     Indication: RHEUMATOID ARTHRITIS
     Route: 048
  14. LAC-B [Concomitant]
     Indication: ENTERITIS
     Route: 048
  15. MUCOSTA [Concomitant]
     Indication: GASTRITIS
     Route: 048
  16. ISCOTIN [Concomitant]
     Indication: ANTIBIOTIC PROPHYLAXIS
     Route: 048
  17. FOSAMAC [Concomitant]
     Indication: OSTEOPOROSIS
     Route: 048
  18. FOLIAMIN [Concomitant]
     Indication: HYPOVITAMINOSIS
     Route: 048

REACTIONS (2)
  - KNEE ARTHROPLASTY [None]
  - TUBERCULOSIS [None]
